FAERS Safety Report 10241700 (Version 2)
Quarter: 2014Q3

REPORT INFORMATION
  Report Type: Spontaneous
  Country: IT (occurrence: IT)
  Receive Date: 20140617
  Receipt Date: 20140807
  Transmission Date: 20150326
  Serious: Yes (Death, Hospitalization)
  Sender: FDA-Public Use
  Company Number: IT-TEVA-488721ISR

PATIENT
  Age: 64 Year
  Sex: Female

DRUGS (2)
  1. CAPECITABINA TEVA [Suspect]
     Active Substance: CAPECITABINE
     Indication: BREAST CANCER METASTATIC
     Dosage: 2000 MILLIGRAM DAILY;
     Route: 048
     Dates: start: 20130329, end: 20140407
  2. TYVERB [Suspect]
     Active Substance: LAPATINIB
     Indication: BREAST CANCER METASTATIC
     Dosage: 1250 MILLIGRAM DAILY;
     Route: 048
     Dates: start: 20130329, end: 20140407

REACTIONS (2)
  - Death [Fatal]
  - Pulmonary embolism [Unknown]

NARRATIVE: CASE EVENT DATE: 20140407
